FAERS Safety Report 6578280-6 (Version None)
Quarter: 2010Q1

REPORT INFORMATION
  Report Type: 
  Country: None (occurrence: None)
  Receive Date: 20100211
  Receipt Date: 20100204
  Transmission Date: 20100710
  Serious: Yes (Other)
  Sender: FDA-Public Use
  Company Number: B0631152A

PATIENT
  Sex: Male

DRUGS (3)
  1. SERETIDE [Suspect]
     Indication: CHRONIC OBSTRUCTIVE PULMONARY DISEASE
     Dosage: 1PUFF TWICE PER DAY
     Route: 055
     Dates: end: 20100104
  2. KALETRA [Suspect]
     Indication: HIV INFECTION
     Dosage: 2UNIT TWICE PER DAY
     Route: 048
     Dates: start: 20070901, end: 20100104
  3. SOLUPRED [Suspect]
     Indication: CHRONIC OBSTRUCTIVE PULMONARY DISEASE
     Route: 048
     Dates: start: 20091225, end: 20091228

REACTIONS (5)
  - BLOOD CORTISOL DECREASED [None]
  - CUSHING'S SYNDROME [None]
  - LIPOHYPERTROPHY [None]
  - MUSCLE ATROPHY [None]
  - SWELLING FACE [None]
